FAERS Safety Report 6531379-2 (Version None)
Quarter: 2010Q1

REPORT INFORMATION
  Report Type: 
  Country: None (occurrence: None)
  Receive Date: 20100108
  Receipt Date: 20091015
  Transmission Date: 20100710
  Serious: No
  Sender: FDA-Public Use
  Company Number: A0812003A

PATIENT
  Age: 56 Year
  Sex: Female

DRUGS (8)
  1. TYKERB [Suspect]
     Indication: BREAST CANCER
     Dosage: 1250MG PER DAY
     Route: 048
     Dates: start: 20090901
  2. SIMVASTATIN [Concomitant]
  3. HYZAAR [Concomitant]
  4. SERTRALINE HCL [Concomitant]
  5. PEPCID [Concomitant]
  6. IMODIUM [Concomitant]
  7. LANTUS [Concomitant]
  8. XELODA [Concomitant]

REACTIONS (4)
  - COUGH [None]
  - DIARRHOEA [None]
  - SKIN EXFOLIATION [None]
  - VOMITING [None]
